FAERS Safety Report 21410874 (Version 1)
Quarter: 2022Q4

REPORT INFORMATION
  Report Type: Spontaneous
  Country: US (occurrence: US)
  Receive Date: 20221005
  Receipt Date: 20221005
  Transmission Date: 20230113
  Serious: No
  Sender: FDA-Public Use
  Company Number: US-009507513-2210USA000132

PATIENT
  Age: 86 Year
  Sex: Male

DRUGS (1)
  1. MOLNUPIRAVIR [Suspect]
     Active Substance: MOLNUPIRAVIR
     Indication: COVID-19 treatment
     Dosage: TWICE DAILY
     Route: 048
     Dates: end: 20220929

REACTIONS (4)
  - Pruritus [Unknown]
  - Dysuria [Unknown]
  - Urticaria [Unknown]
  - Rash [Unknown]

NARRATIVE: CASE EVENT DATE: 20220928
